FAERS Safety Report 9343876 (Version 1)
Quarter: 2013Q2

REPORT INFORMATION
  Report Type: Spontaneous
  Country: US (occurrence: US)
  Receive Date: 20130612
  Receipt Date: 20130612
  Transmission Date: 20140414
  Serious: No
  Sender: FDA-Public Use
  Company Number: US-PFIZER INC-2013173597

PATIENT
  Age: 63 Year
  Sex: Male
  Weight: 86.2 kg

DRUGS (2)
  1. LEVOXYL [Suspect]
     Indication: THYROID DISORDER
     Dosage: 100 UG, 1X/DAY
  2. LEVOXYL [Suspect]
     Dosage: 112 UG, 1X/DAY
     Dates: start: 2012

REACTIONS (2)
  - Hypoaesthesia [Unknown]
  - Dizziness [Unknown]
